FAERS Safety Report 7675413-5 (Version None)
Quarter: 2011Q3

REPORT INFORMATION
  Report Type: 
  Country: None (occurrence: None)
  Receive Date: 20110810
  Receipt Date: 20110805
  Transmission Date: 20111222
  Serious: Yes (Death, Hospitalization)
  Sender: FDA-Public Use
  Company Number: MX-SANOFI-AVENTIS-2011SA050228

PATIENT
  Age: 96 Year
  Sex: Female

DRUGS (3)
  1. DILTIAZEM [Concomitant]
     Route: 048
     Dates: end: 20110509
  2. BI-EUGLUCON [Concomitant]
     Indication: TYPE 2 DIABETES MELLITUS
     Route: 048
     Dates: end: 20110509
  3. PLAVIX [Suspect]
     Route: 048
     Dates: start: 20100601, end: 20110511

REACTIONS (2)
  - DISEASE COMPLICATION [None]
  - HAEMORRHAGIC STROKE [None]
